FAERS Safety Report 5956368-8 (Version None)
Quarter: 2008Q4

REPORT INFORMATION
  Report Type: 
  Country: None (occurrence: None)
  Receive Date: 20081118
  Receipt Date: 20081110
  Transmission Date: 20090506
  Serious: Yes (Other)
  Sender: FDA-Public Use
  Company Number: BR-AVENTIS-200820656GDDC

PATIENT
  Sex: Male
  Weight: 82 kg

DRUGS (2)
  1. DAONIL [Suspect]
     Dosage: DOSE: VARIES WEEKLY
     Route: 048
     Dates: start: 20000101, end: 20050101
  2. DAONIL [Suspect]
     Dosage: DOSE QUANTITY: 1
     Route: 048
     Dates: start: 20050101, end: 20081108

REACTIONS (3)
  - BLOOD PRESSURE DECREASED [None]
  - LOSS OF CONSCIOUSNESS [None]
  - VISUAL IMPAIRMENT [None]
